FAERS Safety Report 7966751-7 (Version None)
Quarter: 2011Q4

REPORT INFORMATION
  Report Type: 
  Country: None (occurrence: None)
  Receive Date: 20111209
  Receipt Date: 20111205
  Transmission Date: 20120403
  Serious: No
  Sender: FDA-Public Use
  Company Number: US-BIOGENIDEC-2011BI046199

PATIENT
  Age: 60 Year
  Sex: Female

DRUGS (1)
  1. TYSABRI [Suspect]
     Indication: MULTIPLE SCLEROSIS
     Route: 042
     Dates: start: 20090914, end: 20111027

REACTIONS (7)
  - PAIN [None]
  - NAUSEA [None]
  - HYPERHIDROSIS [None]
  - INSOMNIA [None]
  - FATIGUE [None]
  - HEADACHE [None]
  - MALAISE [None]
